FAERS Safety Report 22650355 (Version 1)
Quarter: 2023Q2

REPORT INFORMATION
  Report Type: Spontaneous
  Country: US (occurrence: US)
  Receive Date: 20230628
  Receipt Date: 20230628
  Transmission Date: 20230722
  Serious: No
  Sender: FDA-Public Use
  Company Number: US-MAYNE PHARMA-2022TMD00724

PATIENT
  Sex: Female
  Weight: 56.689 kg

DRUGS (10)
  1. IMVEXXY [Suspect]
     Active Substance: ESTRADIOL
     Indication: Vulvovaginal dryness
     Dosage: 10 ?G, 1X/DAY
     Route: 067
     Dates: start: 20220627
  2. IMVEXXY [Suspect]
     Active Substance: ESTRADIOL
     Indication: Dyspareunia
  3. EUTHYROX [Concomitant]
     Active Substance: LEVOTHYROXINE SODIUM
     Dosage: 25 ?G, 1X/DAY IN THE MORNING BEFORE BREAKFAST
     Route: 048
  4. KIRKLAND^S SIGNATURE ORGANIC MULTIVITAMINS [Concomitant]
     Dosage: 1 TABLETS, 1X/DAY IN THE MORNING
  5. LUTEIN [Concomitant]
     Active Substance: LUTEIN
     Dosage: 25 MG, 1X/DAY
  6. B12 500 [Concomitant]
     Dosage: 500 ?G, 1X/DAY
  7. VITAMIN D3 [Concomitant]
     Active Substance: CHOLECALCIFEROL
     Dosage: 125 ?G, 1X/DAY
  8. LYSINE [Concomitant]
     Active Substance: LYSINE
     Dosage: 1000 MG, 1X/DAY
  9. NUMEDICA BRAND OMEGA 3 [Concomitant]
     Dosage: 550 UNK, 1X/DAY
  10. OSTEO VEGAN CALCIUM [Concomitant]
     Dosage: 3 CAPSULES, 1X/DAY IN THE MORNING

REACTIONS (8)
  - Urine abnormality [Not Recovered/Not Resolved]
  - Headache [Recovered/Resolved]
  - Vulvovaginal pain [Not Recovered/Not Resolved]
  - Vaginal haemorrhage [Unknown]
  - Vulvovaginal discomfort [Recovering/Resolving]
  - Dysuria [Not Recovered/Not Resolved]
  - Vaginal discharge [Unknown]
  - Product administration error [Unknown]

NARRATIVE: CASE EVENT DATE: 20220101
